FAERS Safety Report 9594502 (Version 1)
Quarter: 2013Q4

REPORT INFORMATION
  Report Type: Spontaneous
  Country: US (occurrence: US)
  Receive Date: 20131004
  Receipt Date: 20131004
  Transmission Date: 20140711
  Serious: No
  Sender: FDA-Public Use
  Company Number: US-GLAXOSMITHKLINE-A1010145A

PATIENT
  Age: 55 Year
  Sex: Female

DRUGS (1)
  1. IMITREX NASAL SPRAY [Suspect]
     Indication: MIGRAINE
     Route: 055
     Dates: start: 20121214

REACTIONS (3)
  - Migraine [Unknown]
  - Headache [Unknown]
  - Drug ineffective [Unknown]
